FAERS Safety Report 7608204-1 (Version None)
Quarter: 2011Q3

REPORT INFORMATION
  Report Type: 
  Country: None (occurrence: None)
  Receive Date: 20110714
  Receipt Date: 20110708
  Transmission Date: 20111222
  Serious: Yes (Death, Life-Threatening, Hospitalization)
  Sender: FDA-Public Use
  Company Number: US-ELI_LILLY_AND_COMPANY-US201010003928

PATIENT
  Sex: Female

DRUGS (12)
  1. CALCIUM WITH VITAMIN D [Concomitant]
  2. FLOVENT [Concomitant]
     Route: 055
  3. COMBIVENT [Concomitant]
     Route: 055
  4. FORTEO [Suspect]
     Indication: OSTEOPOROSIS
     Dosage: 20 UG, QD
     Route: 065
     Dates: start: 20090706
  5. FORTEO [Suspect]
     Dosage: 20 UG, QD
     Route: 065
  6. PRAVASTATIN                        /00880402/ [Concomitant]
     Dosage: 40 MG, DAILY (1/D)
  7. OXYGEN [Concomitant]
     Dosage: 7 L, UNK
  8. CENTRUM SILVER [Concomitant]
  9. THEOPHYLLINE [Concomitant]
     Dosage: 200 MG, 2/D
  10. OXYGEN [Concomitant]
     Dosage: 2 L, UNK
  11. ALBUTEROL SULFATE AUTOHALER [Concomitant]
     Dosage: 4 MG, 2/D
  12. LEVOTHYROXINE [Concomitant]
     Dosage: 50 UG, DAILY (1/D)

REACTIONS (9)
  - RESPIRATORY FAILURE [None]
  - OXYGEN SATURATION DECREASED [None]
  - CLAUSTROPHOBIA [None]
  - DYSPNOEA [None]
  - CARBON DIOXIDE INCREASED [None]
  - LUNG DISORDER [None]
  - BREATH SOUNDS ABSENT [None]
  - PNEUMONIA [None]
  - ASTHENIA [None]
